FAERS Safety Report 7194531-1 (Version None)
Quarter: 2010Q4

REPORT INFORMATION
  Report Type: 
  Country: None (occurrence: None)
  Receive Date: 20101223
  Receipt Date: 20101214
  Transmission Date: 20110411
  Serious: Yes (Hospitalization)
  Sender: FDA-Public Use
  Company Number: GB-WATSON-2010-16241

PATIENT
  Age: 51 Year
  Sex: Male

DRUGS (3)
  1. DIPYRIDAMOLE [Suspect]
     Indication: LEFT VENTRICULAR FAILURE
     Dosage: 75 MG, TID
  2. ASPIRIN [Suspect]
     Indication: LEFT VENTRICULAR FAILURE
     Dosage: 100 MG, BID
  3. TINZAPARIN [Suspect]
     Indication: LEFT VENTRICULAR FAILURE
     Dosage: 18000 UNITS DAILY

REACTIONS (2)
  - COMPARTMENT SYNDROME [None]
  - HAEMATOMA [None]
